FAERS Safety Report 4287147-8 (Version None)
Quarter: 2004Q1

REPORT INFORMATION
  Report Type: 
  Country: None (occurrence: None)
  Receive Date: 20040126
  Receipt Date: 20031125
  Transmission Date: 20041129
  Serious: No
  Sender: FDA-Public Use
  Company Number: USA030845024

PATIENT
  Age: 80 Year
  Sex: Female
  Weight: 55 kg

DRUGS (3)
  1. FORTEO [Suspect]
     Indication: OSTEOPOROSIS
     Dates: start: 20030101
  2. LANOXIN [Concomitant]
  3. MULTIVITAMIN [Concomitant]

REACTIONS (4)
  - CHOLELITHIASIS [None]
  - INJECTION SITE PAIN [None]
  - MUSCLE CRAMP [None]
  - PAIN IN EXTREMITY [None]
